FAERS Safety Report 17956946 (Version 1)
Quarter: 2020Q2

REPORT INFORMATION
  Report Type: Spontaneous
  Country: GB (occurrence: GB)
  Receive Date: 20200629
  Receipt Date: 20200629
  Transmission Date: 20200714
  Serious: Yes (Death, Other)
  Sender: FDA-Public Use
  Company Number: GB-AUROBINDO-AUR-APL-2020-030817

PATIENT
  Age: 52 Year
  Sex: Male

DRUGS (4)
  1. CODEINE PHOSPHATE [Suspect]
     Active Substance: CODEINE PHOSPHATE
     Indication: ANALGESIC THERAPY
     Dosage: 90 MILLIGRAM, ONCE A DAY
     Route: 048
     Dates: start: 20180102
  2. CLOBAZAM. [Concomitant]
     Active Substance: CLOBAZAM
     Indication: PRODUCT USED FOR UNKNOWN INDICATION
     Dosage: UNK
     Route: 065
  3. OLANZAPINE. [Suspect]
     Active Substance: OLANZAPINE
     Indication: PRODUCT USED FOR UNKNOWN INDICATION
     Dosage: UNK
     Route: 065
  4. MELATONIN [Concomitant]
     Active Substance: MELATONIN
     Indication: PRODUCT USED FOR UNKNOWN INDICATION
     Dosage: UNK
     Route: 065

REACTIONS (7)
  - Emotional disorder [Unknown]
  - Drug dependence [Unknown]
  - Dyspnoea [Unknown]
  - Cyanosis [Unknown]
  - Somnolence [Unknown]
  - Death [Fatal]
  - Hypersomnia [Unknown]
